FAERS Safety Report 7587200-7 (Version None)
Quarter: 2011Q3

REPORT INFORMATION
  Report Type: 
  Country: None (occurrence: None)
  Receive Date: 20110701
  Receipt Date: 20110621
  Transmission Date: 20111222
  Serious: Yes (Hospitalization, Other)
  Sender: FDA-Public Use
  Company Number: JP-ELI_LILLY_AND_COMPANY-JP201104006371

PATIENT
  Sex: Male
  Weight: 59 kg

DRUGS (15)
  1. ALIMTA [Suspect]
     Dosage: 800 MG, OTHER
     Route: 042
     Dates: start: 20110401, end: 20110401
  2. MAGNESIUM SULFATE [Concomitant]
     Indication: CONSTIPATION
     Dosage: UNK
     Route: 048
     Dates: start: 20110331
  3. DECADRON [Concomitant]
     Indication: NAUSEA
     Dosage: UNK
     Route: 048
     Dates: start: 20110401, end: 20110405
  4. ALIMTA [Suspect]
     Dosage: 800 MG, OTHER
     Route: 042
     Dates: start: 20110127, end: 20110311
  5. CARBOPLATIN [Concomitant]
     Dosage: 450 MG, OTHER
     Route: 042
     Dates: start: 20110127, end: 20110311
  6. PANVITAN [Concomitant]
     Dosage: UNK
     Route: 048
     Dates: start: 20101129, end: 20110424
  7. METHYCOBAL [Concomitant]
     Dosage: UNK
     Route: 030
     Dates: start: 20101129
  8. URSO 250 [Concomitant]
     Indication: HEPATIC FUNCTION ABNORMAL
     Dosage: UNK
     Route: 048
     Dates: start: 20110103
  9. DEXAMETHASONE SODIUM PHOSPHATE [Concomitant]
     Dosage: UNK
     Route: 042
     Dates: start: 20101210, end: 20110401
  10. LANSOPRAZOLE [Concomitant]
     Dosage: UNK
     Route: 048
     Dates: start: 20110103
  11. ATARAX [Concomitant]
     Indication: NAUSEA
     Dosage: UNK
     Route: 048
     Dates: start: 20110401, end: 20110405
  12. SEROTONE [Concomitant]
     Dosage: UNK
     Route: 042
     Dates: start: 20101210, end: 20110401
  13. AVASTIN [Concomitant]
     Indication: LUNG ADENOCARCINOMA
     Dosage: 800 MG, OTHER
     Route: 042
     Dates: start: 20110127, end: 20110311
  14. ALIMTA [Suspect]
     Indication: LUNG ADENOCARCINOMA
     Dosage: 800 MG, OTHER
     Route: 042
     Dates: start: 20101210, end: 20110104
  15. CARBOPLATIN [Concomitant]
     Indication: LUNG ADENOCARCINOMA
     Dosage: 450 MG, OTHER
     Route: 042
     Dates: start: 20101210, end: 20110104

REACTIONS (4)
  - HAEMOGLOBIN DECREASED [None]
  - PNEUMOCYSTIS JIROVECI PNEUMONIA [None]
  - NEOPLASM PROGRESSION [None]
  - PNEUMONITIS [None]
